FAERS Safety Report 6937086 (Version 2)
Quarter: 2013Q4

REPORT INFORMATION
  Report Type: Spontaneous
  Country: CA (occurrence: CA)
  Receive Date: 20090313
  Receipt Date: 20131220
  Transmission Date: 20140711
  Serious: Yes (Life-Threatening, Hospitalization, Other)
  Sender: FDA-Public Use
  Company Number: CA-ROCHE-617810

PATIENT
  Age: 22 Year
  Sex: Male

DRUGS (2)
  1. ACCUTANE [Suspect]
     Indication: ACNE CYSTIC
     Dosage: THERAPY DURATION: 93.0 DAYS
     Route: 048
     Dates: start: 200003, end: 200006
  2. CYCLOPHOSPHAMIDE [Suspect]
     Indication: GRANULOMATOSIS WITH POLYANGIITIS
     Route: 048
     Dates: start: 2000

REACTIONS (17)
  - Granulomatosis with polyangiitis [Not Recovered/Not Resolved]
  - Kidney infection [Recovered/Resolved]
  - Splenic infarction [Recovered/Resolved]
  - Hepatomegaly [Recovered/Resolved]
  - Splenomegaly [Recovered/Resolved]
  - Hepatic function abnormal [Recovered/Resolved]
  - Aphagia [Recovered/Resolved]
  - Headache [Recovered/Resolved]
  - Epistaxis [Recovered/Resolved]
  - Loss of consciousness [Recovered/Resolved]
  - Bedridden [Recovered/Resolved]
  - Fluid intake reduced [Recovered/Resolved]
  - Dehydration [Recovered/Resolved]
  - Infertility male [Not Recovered/Not Resolved]
  - Activities of daily living impaired [Not Recovered/Not Resolved]
  - Condition aggravated [Not Recovered/Not Resolved]
  - Liver function test abnormal [Not Recovered/Not Resolved]
